FAERS Safety Report 23230465 (Version 2)
Quarter: 2023Q4

REPORT INFORMATION
  Report Type: Report from Study
  Country: CL (occurrence: CL)
  Receive Date: 20231127
  Receipt Date: 20231205
  Transmission Date: 20240109
  Serious: Yes (Other)
  Sender: FDA-Public Use
  Company Number: CL-002147023-NVSC2023CL248730

PATIENT
  Age: 50 Year
  Sex: Female
  Weight: 75 kg

DRUGS (1)
  1. ETANERCEPT [Suspect]
     Active Substance: ETANERCEPT
     Indication: Rheumatoid arthritis
     Dosage: 40 MG, Q2W
     Route: 058
     Dates: start: 20230908

REACTIONS (11)
  - Blindness [Unknown]
  - Concomitant disease aggravated [Unknown]
  - Alopecia [Unknown]
  - Presbyopia [Unknown]
  - Nasopharyngitis [Unknown]
  - Nasal congestion [Unknown]
  - Pyrexia [Unknown]
  - Throat irritation [Unknown]
  - Pain [Unknown]
  - Anxiety [Unknown]
  - Off label use [Unknown]

NARRATIVE: CASE EVENT DATE: 20230908
